FAERS Safety Report 7718433-4 (Version None)
Quarter: 2011Q3

REPORT INFORMATION
  Report Type: 
  Country: None (occurrence: None)
  Receive Date: 20110830
  Receipt Date: 20110826
  Transmission Date: 20111222
  Serious: No
  Sender: FDA-Public Use
  Company Number: US-PFIZER INC-2011199653

PATIENT
  Sex: Male
  Weight: 95 kg

DRUGS (1)
  1. LOPID [Suspect]
     Indication: BLOOD CHOLESTEROL INCREASED
     Dosage: 600 MG, 2X/DAY
     Route: 048
     Dates: start: 20110801, end: 20110823

REACTIONS (1)
  - COUGH [None]
